FAERS Safety Report 6153057-4 (Version None)
Quarter: 2009Q2

REPORT INFORMATION
  Report Type: 
  Country: None (occurrence: None)
  Receive Date: 20090413
  Receipt Date: 20090402
  Transmission Date: 20091009
  Serious: Yes (Hospitalization)
  Sender: FDA-Public Use
  Company Number: JP-JNJFOC-20090303556

PATIENT
  Sex: Male
  Weight: 48 kg

DRUGS (6)
  1. REMICADE [Suspect]
     Route: 042
  2. REMICADE [Suspect]
     Indication: CROHN'S DISEASE
     Route: 042
  3. POSTERISAN [Suspect]
     Indication: HAEMORRHOIDS
  4. PENTASA [Concomitant]
     Indication: CROHN'S DISEASE
     Route: 048
  5. ELENTAL [Concomitant]
     Dosage: 6 PACKETS/DAY
     Route: 048
  6. ELENTAL [Concomitant]
     Indication: CROHN'S DISEASE
     Dosage: 4 PACKETS/DAY
     Route: 048

REACTIONS (1)
  - HYPOKALAEMIA [None]
